FAERS Safety Report 6198970-7 (Version None)
Quarter: 2009Q2

REPORT INFORMATION
  Report Type: 
  Country: None (occurrence: None)
  Receive Date: 20090522
  Receipt Date: 20090515
  Transmission Date: 20091009
  Serious: Yes (Hospitalization)
  Sender: FDA-Public Use
  Company Number: CH-TEVA-195351ISR

PATIENT
  Age: 69 Year
  Sex: Male

DRUGS (3)
  1. VINCRISTINE [Suspect]
     Dates: start: 20090423
  2. PREDNISONE [Suspect]
     Route: 048
     Dates: start: 20090423
  3. DOXORUBICIN HCL [Suspect]
     Dates: start: 20090423

REACTIONS (1)
  - DIABETES MELLITUS [None]
